FAERS Safety Report 17996961 (Version 1)
Quarter: 2020Q3

REPORT INFORMATION
  Report Type: Spontaneous
  Country: US (occurrence: US)
  Receive Date: 20200709
  Receipt Date: 20200709
  Transmission Date: 20201103
  Serious: No
  Sender: FDA-Public Use
  Company Number: US-DRREDDYS-USA/USA/20/0124680

PATIENT
  Age: 48 Year
  Sex: Male
  Weight: 81 kg

DRUGS (2)
  1. HABITROL [Suspect]
     Active Substance: NICOTINE
     Route: 062
     Dates: start: 20200630
  2. HABITROL [Suspect]
     Active Substance: NICOTINE
     Indication: TOBACCO USER
     Dosage: STARTED A COUPLE WEEKS AGO AND STOPPED ON SAME DAY
     Route: 062

REACTIONS (5)
  - Illness [Unknown]
  - Abdominal discomfort [Unknown]
  - Nicotine dependence [Unknown]
  - Treatment noncompliance [Unknown]
  - Incorrect dose administered [Unknown]
